FAERS Safety Report 10708763 (Version 2)
Quarter: 2015Q1

REPORT INFORMATION
  Report Type: Spontaneous
  Country: US (occurrence: US)
  Receive Date: 20150113
  Receipt Date: 20150218
  Transmission Date: 20150721
  Serious: No
  Sender: FDA-Public Use
  Company Number: US-PFIZER INC-2015012948

PATIENT
  Sex: Male

DRUGS (1)
  1. LYRICA [Suspect]
     Active Substance: PREGABALIN
     Indication: PAIN
     Dosage: UNK, AS NEEDED NOT EVERY DAY

REACTIONS (5)
  - Lip swelling [Unknown]
  - Oral discomfort [Unknown]
  - Dysarthria [Unknown]
  - Hypersensitivity [Unknown]
  - Swollen tongue [Unknown]
